FAERS Safety Report 6028743-7 (Version None)
Quarter: 2009Q1

REPORT INFORMATION
  Report Type: 
  Country: None (occurrence: None)
  Receive Date: 20090106
  Receipt Date: 20090105
  Transmission Date: 20090719
  Serious: Yes (Other)
  Sender: FDA-Public Use
  Company Number: A0683080A

PATIENT
  Age: 43 Year
  Sex: Male
  Weight: 81.8 kg

DRUGS (4)
  1. AVANDAMET [Suspect]
     Indication: DIABETES MELLITUS
     Route: 048
     Dates: start: 20060401
  2. AVANDIA [Suspect]
     Dosage: 8MG PER DAY
     Route: 048
  3. METFORMIN HCL [Concomitant]
     Dosage: 1000MG TWICE PER DAY
     Route: 048
  4. PRAVACHOL [Concomitant]

REACTIONS (3)
  - BLINDNESS [None]
  - CEREBROVASCULAR ACCIDENT [None]
  - PAIN [None]
